FAERS Safety Report 12394587 (Version 1)
Quarter: 2016Q2

REPORT INFORMATION
  Report Type: Spontaneous
  Country: PL (occurrence: PL)
  Receive Date: 20160523
  Receipt Date: 20160523
  Transmission Date: 20160815
  Serious: Yes (Other)
  Sender: FDA-Public Use
  Company Number: PL-TEVA-660388ISR

PATIENT
  Sex: Female

DRUGS (1)
  1. EQUORAL [Suspect]
     Active Substance: CYCLOSPORINE

REACTIONS (1)
  - Cerebrovascular accident [Unknown]
